FAERS Safety Report 7047779-0 (Version None)
Quarter: 2010Q4

REPORT INFORMATION
  Report Type: 
  Country: None (occurrence: None)
  Receive Date: 20101015
  Receipt Date: 20101004
  Transmission Date: 20110411
  Serious: Yes (Hospitalization)
  Sender: FDA-Public Use
  Company Number: FR-PFIZER INC-2010120728

PATIENT
  Age: 57 Year
  Sex: Male
  Weight: 70 kg

DRUGS (14)
  1. SUTENT [Suspect]
     Indication: METASTASES TO CENTRAL NERVOUS SYSTEM
     Dosage: 50 MG, CYCLIC (4 WEEKS OUT OF 6)
     Dates: start: 20090506
  2. MIRTAZAPINE [Concomitant]
     Indication: INSOMNIA
     Dosage: 15 MG, 1X/DAY
  3. XANAX [Concomitant]
     Dosage: UNK
  4. SOLUPRED [Concomitant]
     Dosage: UNK
     Dates: end: 20100715
  5. SOLUPRED [Concomitant]
     Dosage: UNK
     Dates: start: 20100716, end: 20100912
  6. STILNOX [Concomitant]
     Indication: INSOMNIA
     Dosage: 1.5 DF, AS NEEDED
  7. NEXIUM [Concomitant]
     Dosage: UNK
  8. TAMSULOSIN [Concomitant]
     Indication: PROPHYLAXIS
     Dosage: UNK
     Dates: start: 20091106
  9. KARDEGIC [Concomitant]
     Dosage: UNK
     Dates: start: 20071101
  10. HOMEOPATHIC PREPARATION [Concomitant]
     Dosage: UNK
     Dates: start: 20100201
  11. LEVOTHYROXINE SODIUM [Concomitant]
     Indication: HYPOTHYROIDISM
     Dosage: 42.5 UG, UNK
     Dates: end: 20100831
  12. LEVOTHYROXINE SODIUM [Concomitant]
     Dosage: 60 UG, UNK
     Dates: start: 20100901
  13. TRAMADOL [Concomitant]
     Indication: HEADACHE
     Dosage: 1 DF, AS NEEDED
  14. PARACETAMOL [Concomitant]
     Indication: HEADACHE
     Dosage: AS NEEDED

REACTIONS (1)
  - INTRACRANIAL PRESSURE INCREASED [None]
